FAERS Safety Report 15264965 (Version 1)
Quarter: 2018Q3

REPORT INFORMATION
  Report Type: Report from Study
  Country: US (occurrence: US)
  Receive Date: 20180810
  Receipt Date: 20180810
  Transmission Date: 20181010
  Serious: Yes (Hospitalization, Other)
  Sender: FDA-Public Use
  Company Number: US-SA-2018SA149528

PATIENT
  Age: 68 Year
  Sex: Female

DRUGS (1)
  1. DRONEDARONE [Suspect]
     Active Substance: DRONEDARONE
     Indication: ATRIAL FIBRILLATION
     Dosage: 400 MG, BID
     Route: 048

REACTIONS (9)
  - Product use complaint [Unknown]
  - Fall [Unknown]
  - Injury [Recovered/Resolved]
  - Arthritis [Not Recovered/Not Resolved]
  - Gait disturbance [Recovered/Resolved]
  - Cataract [Unknown]
  - Product storage error [Unknown]
  - Joint swelling [Recovered/Resolved]
  - Infection [Recovered/Resolved]

NARRATIVE: CASE EVENT DATE: 2015
